FAERS Safety Report 10051076 (Version 2)
Quarter: 2014Q2

REPORT INFORMATION
  Report Type: Spontaneous
  Country: US (occurrence: US)
  Receive Date: 20140401
  Receipt Date: 20140401
  Transmission Date: 20141212
  Serious: No
  Sender: FDA-Public Use
  Company Number: US-ASTRAZENECA-2012SE41472

PATIENT
  Age: 58 Year
  Sex: Female
  Weight: 36.3 kg

DRUGS (14)
  1. NEXIUM [Suspect]
     Indication: GASTROOESOPHAGEAL REFLUX DISEASE
     Route: 048
  2. NEXIUM [Suspect]
     Indication: ULCER
     Route: 048
  3. NEXIUM [Suspect]
     Indication: GASTROOESOPHAGEAL REFLUX DISEASE
     Route: 048
  4. NEXIUM [Suspect]
     Indication: ULCER
     Route: 048
  5. NEXIUM [Suspect]
     Indication: GASTROOESOPHAGEAL REFLUX DISEASE
     Dosage: TWICE A DAY
     Route: 048
     Dates: end: 201305
  6. NEXIUM [Suspect]
     Indication: ULCER
     Dosage: TWICE A DAY
     Route: 048
     Dates: end: 201305
  7. TRAMIDAL [Concomitant]
     Indication: ARTHRITIS
     Route: 048
  8. TRAMIDAL [Concomitant]
     Indication: INTERVERTEBRAL DISC DEGENERATION
     Route: 048
  9. TRAMIDAL [Concomitant]
     Indication: SPINAL FRACTURE
     Route: 048
  10. HYDROCODONE [Concomitant]
     Indication: ARTHRITIS
     Dosage: 1 Q4-6H
     Route: 048
  11. HYDROCODONE [Concomitant]
     Indication: INTERVERTEBRAL DISC DEGENERATION
     Dosage: 1 Q4-6H
     Route: 048
  12. HYDROCODONE [Concomitant]
     Indication: SPINAL FRACTURE
     Dosage: 1 Q4-6H
     Route: 048
  13. LYRICA [Concomitant]
     Indication: FIBROMYALGIA
     Route: 048
  14. RANITIDINE [Concomitant]
     Indication: GASTROOESOPHAGEAL REFLUX DISEASE
     Route: 048
     Dates: end: 201301

REACTIONS (6)
  - Oesophageal pain [Not Recovered/Not Resolved]
  - Aphagia [Not Recovered/Not Resolved]
  - Abdominal pain [Not Recovered/Not Resolved]
  - Abdominal pain upper [Not Recovered/Not Resolved]
  - Headache [Not Recovered/Not Resolved]
  - Intentional product misuse [Unknown]
